FAERS Safety Report 23530648 (Version 1)
Quarter: 2024Q1

REPORT INFORMATION
  Report Type: Spontaneous
  Country: GB (occurrence: GB)
  Receive Date: 20240216
  Receipt Date: 20240216
  Transmission Date: 20240410
  Serious: Yes (Disabling)
  Sender: FDA-Public Use
  Company Number: GB-TEVA-2006-CZ-00105

PATIENT
  Sex: Female

DRUGS (10)
  1. CITALOPRAM [Suspect]
     Active Substance: CITALOPRAM HYDROBROMIDE
     Dosage: 20MG FILM-COATED TABLETS
     Route: 048
     Dates: start: 20001208
  2. FLUOXETINE [Suspect]
     Active Substance: FLUOXETINE HYDROCHLORIDE
     Indication: Product used for unknown indication
     Dosage: IVAX 20 MG, G?LULE
     Route: 048
     Dates: start: 20000126
  3. PAROXETINE [Suspect]
     Active Substance: PAROXETINE
     Indication: Product used for unknown indication
     Dosage: IVAX 20 MG, COMPRIM? PELLICUL? S?CABLE
     Route: 048
     Dates: start: 20010206
  4. DOTHIEPIN [Suspect]
     Active Substance: DOTHIEPIN\DOTHIEPIN HYDROCHLORIDE
     Indication: Product used for unknown indication
     Dosage: CAPSULES BP 25MG
     Route: 048
     Dates: start: 20011012
  5. VENLAFAXINE [Suspect]
     Active Substance: VENLAFAXINE HYDROCHLORIDE
     Indication: Product used for unknown indication
     Route: 048
     Dates: start: 200404
  6. AMITRIPTYLINE [Suspect]
     Active Substance: AMITRIPTYLINE
     Indication: Product used for unknown indication
     Route: 048
     Dates: start: 20040611
  7. LOFEPRAMINE [Suspect]
     Active Substance: LOFEPRAMINE
     Indication: Product used for unknown indication
     Route: 065
     Dates: start: 200403
  8. MIRTAZAPINE [Suspect]
     Active Substance: MIRTAZAPINE
     Indication: Product used for unknown indication
     Route: 065
     Dates: start: 20010730
  9. LOSARTAN [Concomitant]
     Active Substance: LOSARTAN
     Indication: Blood pressure increased
     Route: 065
     Dates: start: 200403
  10. OMEPRAZOLE [Concomitant]
     Active Substance: OMEPRAZOLE
     Indication: Product used for unknown indication
     Route: 048
     Dates: start: 200307

REACTIONS (3)
  - Swelling of eyelid [Recovered/Resolved]
  - Inflammation [Recovered/Resolved]
  - Eye pruritus [Recovered/Resolved]
